FAERS Safety Report 5357656-9 (Version None)
Quarter: 2007Q2

REPORT INFORMATION
  Report Type: 
  Country: None (occurrence: None)
  Receive Date: 20070614
  Receipt Date: 20070607
  Transmission Date: 20071010
  Serious: Yes (Other)
  Sender: FDA-Public Use
  Company Number: CN-GILEAD-2007-0012401

PATIENT
  Age: 45 Year
  Sex: Male

DRUGS (2)
  1. HEPSERA [Suspect]
     Route: 048
     Dates: start: 20060601
  2. HEPTODIN [Concomitant]
     Indication: HEPATITIS B
     Route: 048
     Dates: start: 20050610

REACTIONS (1)
  - LEUKOPENIA [None]
